FAERS Safety Report 13401423 (Version 2)
Quarter: 2017Q2

REPORT INFORMATION
  Report Type: Spontaneous
  Country: US (occurrence: US)
  Receive Date: 20170404
  Receipt Date: 20170516
  Transmission Date: 20170830
  Serious: No
  Sender: FDA-Public Use
  Company Number: US-009507513-1703USA013853

PATIENT
  Age: 20 Year
  Sex: Female

DRUGS (3)
  1. CUBICIN [Suspect]
     Active Substance: DAPTOMYCIN
     Indication: STAPHYLOCOCCAL INFECTION
     Dosage: 500 MG, QD
     Route: 042
  2. TAZOBACTAM [Concomitant]
     Active Substance: TAZOBACTAM
     Indication: STAPHYLOCOCCAL INFECTION
  3. PIPERACILLIN [Concomitant]
     Active Substance: PIPERACILLIN
     Indication: STAPHYLOCOCCAL INFECTION

REACTIONS (1)
  - Exposure during pregnancy [Unknown]
